FAERS Safety Report 7681285-5 (Version None)
Quarter: 2011Q3

REPORT INFORMATION
  Report Type: 
  Country: None (occurrence: None)
  Receive Date: 20110804
  Receipt Date: 20110729
  Transmission Date: 20111222
  Serious: Yes (Other)
  Sender: FDA-Public Use
  Company Number: 2011SP035444

PATIENT
  Sex: Male

DRUGS (2)
  1. FLUOXETINE [Suspect]
     Dosage: 40 MG;
  2. MIRTAZAPINE [Suspect]
     Dosage: 45 MG;
     Dates: start: 20110501

REACTIONS (3)
  - AGGRESSION [None]
  - LIBIDO DECREASED [None]
  - AGITATION [None]
